FAERS Safety Report 11163947 (Version 14)
Quarter: 2017Q1

REPORT INFORMATION
  Report Type: Report from Study
  Country: MX (occurrence: MX)
  Receive Date: 20150604
  Receipt Date: 20170117
  Transmission Date: 20170428
  Serious: Yes (Hospitalization)
  Sender: FDA-Public Use
  Company Number: MX-ROCHE-1582512

PATIENT
  Age: 29 Year
  Sex: Female
  Weight: 77 kg

DRUGS (8)
  1. MABTHERA [Suspect]
     Active Substance: RITUXIMAB
     Dosage: 500 MG ON 22/DEC/2016 AND 500 MG ON 23/DEC/2016.
     Route: 042
     Dates: start: 20161222
  2. FOLIC ACID. [Concomitant]
     Active Substance: FOLIC ACID
     Indication: RHEUMATOID ARTHRITIS
  3. ROACTEMRA [Suspect]
     Active Substance: TOCILIZUMAB
     Indication: RHEUMATOID ARTHRITIS
     Dosage: MOST RECENT DOSE OF TOCILIZUMAB: 02/MAY/2015?MOST RECENT DOSE OF TOCILIZUMAB: 24/JUL/2015?MOST RECEN
     Route: 042
     Dates: start: 20150308, end: 201511
  4. MABTHERA [Suspect]
     Active Substance: RITUXIMAB
     Indication: RHEUMATOID ARTHRITIS
     Dosage: BOOSTER DOSE OF 1000 MG 15 DAYS LATER?ON 11/DEC/2015 AND 12/DEC/2015, 500 MG EACH DAY.
     Route: 042
     Dates: start: 20151211
  5. METHOTREXATE. [Concomitant]
     Active Substance: METHOTREXATE
     Indication: RHEUMATOID ARTHRITIS
     Dosage: 4 TABLETS OF 2.5 MG PER WEEK
     Route: 048
     Dates: start: 201408, end: 201505
  6. ARAVA [Concomitant]
     Active Substance: LEFLUNOMIDE
     Indication: RHEUMATOID ARTHRITIS
  7. ROACTEMRA [Suspect]
     Active Substance: TOCILIZUMAB
     Route: 042
     Dates: start: 201403
  8. CELEBREX [Concomitant]
     Active Substance: CELECOXIB
     Route: 048
     Dates: start: 201503

REACTIONS (27)
  - Inflammation [Unknown]
  - Conjunctivitis [Recovering/Resolving]
  - Drug hypersensitivity [Not Recovered/Not Resolved]
  - Pain [Not Recovered/Not Resolved]
  - Malaise [Not Recovered/Not Resolved]
  - Lactose intolerance [Unknown]
  - Malaise [Not Recovered/Not Resolved]
  - Mood altered [Not Recovered/Not Resolved]
  - Drug ineffective [Unknown]
  - Road traffic accident [Unknown]
  - Encephalopathy [Recovered/Resolved]
  - Gait disturbance [Not Recovered/Not Resolved]
  - Pharyngitis [Recovering/Resolving]
  - Aphthous ulcer [Not Recovered/Not Resolved]
  - Pain [Not Recovered/Not Resolved]
  - Arthralgia [Recovering/Resolving]
  - Drug dose omission [Unknown]
  - Muscle rigidity [Unknown]
  - Feeling abnormal [Recovered/Resolved]
  - Eye discharge [Not Recovered/Not Resolved]
  - Somnolence [Unknown]
  - Back pain [Not Recovered/Not Resolved]
  - Arthralgia [Not Recovered/Not Resolved]
  - Gastric infection [Recovering/Resolving]
  - Ligament sprain [Not Recovered/Not Resolved]
  - Musculoskeletal chest pain [Unknown]
  - Memory impairment [Recovering/Resolving]

NARRATIVE: CASE EVENT DATE: 201504
